FAERS Safety Report 20430391 (Version 1)
Quarter: 2022Q1

REPORT INFORMATION
  Report Type: Report from Study
  Country: FR (occurrence: FR)
  Receive Date: 20220204
  Receipt Date: 20220204
  Transmission Date: 20220423
  Serious: Yes (Hospitalization)
  Sender: FDA-Public Use
  Company Number: FR-SERVIER-S20007039

PATIENT

DRUGS (10)
  1. PEGASPARGASE [Suspect]
     Active Substance: PEGASPARGASE
     Indication: Acute lymphocytic leukaemia
     Dosage: 4350 IU, D4, D43
     Route: 042
     Dates: start: 20190620, end: 20190804
  2. PREDNISOLONE [Suspect]
     Active Substance: PREDNISOLONE
     Indication: Acute lymphocytic leukaemia
     Dosage: 17 MG, D1 TO D7, D15 TO D21
     Route: 048
     Dates: start: 20190617, end: 20190707
  3. VINCRISTINE SULFATE [Suspect]
     Active Substance: VINCRISTINE SULFATE
     Indication: Acute lymphocytic leukaemia
     Dosage: 2 MG, D1, D8, D15,D43,D50
     Route: 042
     Dates: start: 20190617, end: 20190811
  4. ADRIAMYCIN [Suspect]
     Active Substance: DOXORUBICIN HYDROCHLORIDE
     Indication: Acute lymphocytic leukaemia
     Dosage: 43 MG, D1,D8,D15
     Route: 042
     Dates: start: 20190617, end: 20190701
  5. THIOGUANINE [Suspect]
     Active Substance: THIOGUANINE
     Indication: Acute lymphocytic leukaemia
     Dosage: 100 MG, D29 TO D42
     Route: 048
     Dates: start: 20190721, end: 20190803
  6. CYTARABINE [Suspect]
     Active Substance: CYTARABINE
     Indication: Acute lymphocytic leukaemia
     Dosage: 130 MG, D31 TO D34, D38 TO D41
     Route: 042
     Dates: start: 20190723, end: 20190802
  7. CYTARABINE [Suspect]
     Active Substance: CYTARABINE
     Dosage: 30 MG, D4, D31
     Route: 037
     Dates: start: 20190626, end: 20190723
  8. CYCLOPHOSPHAMIDE [Suspect]
     Active Substance: CYCLOPHOSPHAMIDE
     Indication: Acute lymphocytic leukaemia
     Dosage: 1740 MG, D29
     Route: 042
     Dates: start: 20190721, end: 20190721
  9. METHOTREXATE [Suspect]
     Active Substance: METHOTREXATE
     Indication: Acute lymphocytic leukaemia
     Dosage: 15 MG, D4, D31
     Route: 037
     Dates: start: 20190620, end: 20190723
  10. METHYLPREDNISOLONE [Suspect]
     Active Substance: METHYLPREDNISOLONE
     Indication: Acute lymphocytic leukaemia
     Dosage: 15.2 MG, D4, D31
     Route: 037
     Dates: start: 20190620, end: 20190723

REACTIONS (1)
  - General physical health deterioration [Recovered/Resolved]

NARRATIVE: CASE EVENT DATE: 20190814
